FAERS Safety Report 11444325 (Version 4)
Quarter: 2015Q4

REPORT INFORMATION
  Report Type: Report from Study
  Country: US (occurrence: US)
  Receive Date: 20150902
  Receipt Date: 20151104
  Transmission Date: 20160304
  Serious: Yes (Hospitalization)
  Sender: FDA-Public Use
  Company Number: PHEH2014US005889

PATIENT
  Age: 20 Year
  Sex: Male

DRUGS (3)
  1. GILENYA [Suspect]
     Active Substance: FINGOLIMOD HYDROCHLORIDE
     Indication: MULTIPLE SCLEROSIS
     Dosage: 0.5 MG, QD
     Route: 048
     Dates: start: 20140313, end: 20150922
  2. MELATONIN [Concomitant]
     Active Substance: MELATONIN
     Indication: PRODUCT USED FOR UNKNOWN INDICATION
     Dosage: UNK
     Route: 065
  3. SOLU-MEDROL [Concomitant]
     Active Substance: METHYLPREDNISOLONE SODIUM SUCCINATE
     Indication: PRODUCT USED FOR UNKNOWN INDICATION
     Dosage: UNK
     Route: 042

REACTIONS (11)
  - Cluster headache [Not Recovered/Not Resolved]
  - Dyspnoea [Unknown]
  - Product physical issue [Unknown]
  - Night sweats [Unknown]
  - Hyperhidrosis [Unknown]
  - Headache [Recovering/Resolving]
  - Abnormal sensation in eye [Unknown]
  - Insomnia [Unknown]
  - Weight decreased [Unknown]
  - Skin disorder [Unknown]
  - Migraine [Unknown]

NARRATIVE: CASE EVENT DATE: 20140413
